FAERS Safety Report 9270903 (Version 1)
Quarter: 2013Q2

REPORT INFORMATION
  Report Type: Spontaneous
  Country: NL (occurrence: NL)
  Receive Date: 20130505
  Receipt Date: 20130505
  Transmission Date: 20140414
  Serious: Yes (Hospitalization, Other)
  Sender: FDA-Public Use
  Company Number: NL-B.I. PHARMACEUTICALS,INC./RIDGEFIELD-2013-BI-11470GD

PATIENT
  Age: 60 Year
  Sex: Male

DRUGS (7)
  1. PRAMIPEXOLE [Suspect]
     Indication: RESTLESS LEGS SYNDROME
     Dosage: 0.125 MG
  2. PRAMIPEXOLE [Suspect]
     Indication: TREMOR
  3. OLANZAPINE [Suspect]
     Indication: HYPOMANIA
     Dosage: 5 MG
  4. MIRTAZAPINE [Suspect]
     Indication: BIPOLAR I DISORDER
     Dosage: 30 MG
  5. MIRTAZAPINE [Suspect]
     Dosage: 15 MG
  6. LITHIUM [Concomitant]
     Indication: BIPOLAR I DISORDER
  7. OXAZEPAM [Concomitant]
     Indication: HYPOMANIA
     Dosage: 10 - 30 MG

REACTIONS (7)
  - Mania [Unknown]
  - Agitation [Unknown]
  - Insomnia [Unknown]
  - Drug interaction [Unknown]
  - Bipolar I disorder [Unknown]
  - Tremor [Not Recovered/Not Resolved]
  - Hypomania [Unknown]
